FAERS Safety Report 8344359-1 (Version None)
Quarter: 2012Q2

REPORT INFORMATION
  Report Type: 
  Country: None (occurrence: None)
  Receive Date: 20120508
  Receipt Date: 20120423
  Transmission Date: 20120825
  Serious: Yes (Other)
  Sender: FDA-Public Use
  Company Number: IT-ROCHE-1062206

PATIENT

DRUGS (2)
  1. AVASTIN [Suspect]
     Indication: RETINAL HAEMORRHAGE
  2. AVASTIN [Suspect]
     Indication: MACULAR OEDEMA
     Route: 050

REACTIONS (1)
  - RETINAL ISCHAEMIA [None]
